FAERS Safety Report 8304600-8 (Version None)
Quarter: 2012Q2

REPORT INFORMATION
  Report Type: 
  Country: None (occurrence: None)
  Receive Date: 20120423
  Receipt Date: 20120416
  Transmission Date: 20120825
  Serious: Yes (Other)
  Sender: FDA-Public Use
  Company Number: US-JNJFOC-20120310071

PATIENT
  Sex: Female
  Weight: 93.44 kg

DRUGS (6)
  1. AN UNKNOWN MEDICATION [Suspect]
     Indication: PRODUCT USED FOR UNKNOWN INDICATION
     Route: 065
  2. MELATONIN [Concomitant]
     Indication: SLEEP DISORDER
     Route: 048
     Dates: start: 20060101
  3. NUCYNTA [Suspect]
     Indication: PAIN
     Route: 048
     Dates: start: 20120309, end: 20120318
  4. LOPRESSOR [Concomitant]
     Indication: HYPERTENSION
     Route: 048
     Dates: start: 19980101
  5. AMITRIPTYLINE HCL [Concomitant]
     Indication: SLEEP DISORDER
     Route: 065
     Dates: start: 20110101
  6. ZOLOFT [Concomitant]
     Indication: DEPRESSION
     Route: 048
     Dates: start: 20111201

REACTIONS (2)
  - SEROTONIN SYNDROME [None]
  - DYSURIA [None]
